FAERS Safety Report 8525909-9 (Version None)
Quarter: 2012Q3

REPORT INFORMATION
  Report Type: 
  Country: None (occurrence: None)
  Receive Date: 20120720
  Receipt Date: 20120714
  Transmission Date: 20120928
  Serious: Yes (Other)
  Sender: FDA-Public Use
  Company Number: PHHY2012MX061659

PATIENT
  Sex: Female

DRUGS (4)
  1. ANAPSIQUE [Concomitant]
     Indication: INSOMNIA
     Dosage: 0.5 DF, QD
  2. GILENYA [Suspect]
     Indication: MULTIPLE SCLEROSIS
     Dosage: 0.5 MG, QD
     Route: 048
     Dates: start: 20120120
  3. TRENTAL [Concomitant]
     Indication: CARDIOVASCULAR INSUFFICIENCY
     Dosage: UNK UKN, BID
  4. SENOKOT [Concomitant]
     Indication: DYSPEPSIA
     Dosage: UNK UKN, Q6H

REACTIONS (4)
  - VOMITING [None]
  - FALL [None]
  - HEADACHE [None]
  - HYPERTENSIVE CRISIS [None]
